FAERS Safety Report 18349875 (Version 1)
Quarter: 2020Q4

REPORT INFORMATION
  Report Type: Spontaneous
  Country: US (occurrence: US)
  Receive Date: 20201006
  Receipt Date: 20201006
  Transmission Date: 20210114
  Serious: Yes (Death)
  Sender: FDA-Public Use
  Company Number: None

PATIENT
  Age: 82 Year
  Sex: Female
  Weight: 81.9 kg

DRUGS (23)
  1. VITAMIN C [Concomitant]
     Active Substance: ASCORBIC ACID
  2. CBD OIL [Concomitant]
     Active Substance: CANNABIDIOL\HERBALS
  3. FISH OIL [Concomitant]
     Active Substance: FISH OIL
  4. ASPIRIN. [Concomitant]
     Active Substance: ASPIRIN
  5. HYDROMORPHONE [Concomitant]
     Active Substance: HYDROMORPHONE
  6. BETAMETHASONE. [Concomitant]
     Active Substance: BETAMETHASONE
  7. ZOFRAN [Concomitant]
     Active Substance: ONDANSETRON HYDROCHLORIDE
  8. GABAPENTIN. [Concomitant]
     Active Substance: GABAPENTIN
  9. XANAX [Concomitant]
     Active Substance: ALPRAZOLAM
  10. AMBIEN [Concomitant]
     Active Substance: ZOLPIDEM TARTRATE
  11. FLONASE [Concomitant]
     Active Substance: FLUTICASONE PROPIONATE
  12. MAGNESIUM [Concomitant]
     Active Substance: MAGNESIUM
  13. OMEPRAZOLE. [Concomitant]
     Active Substance: OMEPRAZOLE
  14. TEMOZOLOMIDE. [Suspect]
     Active Substance: TEMOZOLOMIDE
     Indication: NEOPLASM MALIGNANT
     Dates: start: 20200910, end: 20201005
  15. GLIPIZIDE. [Concomitant]
     Active Substance: GLIPIZIDE
  16. DHA [Concomitant]
     Active Substance: DIETARY SUPPLEMENT
  17. SYNTHROID [Concomitant]
     Active Substance: LEVOTHYROXINE SODIUM
  18. TEMOZOLOMIDE. [Suspect]
     Active Substance: TEMOZOLOMIDE
     Indication: NEOPLASM MALIGNANT
     Dates: start: 20200910, end: 20201005
  19. TYLENOL [Concomitant]
     Active Substance: ACETAMINOPHEN
  20. COCONUT OIL [Concomitant]
     Active Substance: COCONUT OIL
  21. GAMMAGARD [Concomitant]
     Active Substance: HUMAN IMMUNOGLOBULIN G
  22. LISINOPRIL. [Concomitant]
     Active Substance: LISINOPRIL
  23. PREDNISONE. [Concomitant]
     Active Substance: PREDNISONE

REACTIONS (1)
  - Death [None]

NARRATIVE: CASE EVENT DATE: 20201006
